FAERS Safety Report 10217314 (Version 1)
Quarter: 2014Q2

REPORT INFORMATION
  Report Type: Report from Study
  Country: GB (occurrence: GB)
  Receive Date: 20140604
  Receipt Date: 20140604
  Transmission Date: 20141212
  Serious: Yes (Other)
  Sender: FDA-Public Use
  Company Number: GB-ABBVIE-14P-167-1240984-00

PATIENT
  Age: 49 Year
  Sex: Male

DRUGS (4)
  1. HUMIRA [Suspect]
     Indication: PRODUCT USED FOR UNKNOWN INDICATION
     Dosage: RECEIVED 4 INJECTIONS
     Route: 050
     Dates: start: 20140410
  2. HUMIRA [Suspect]
     Dosage: RECEIVED 2 INJECTIONS
     Route: 050
     Dates: start: 20140424
  3. HUMIRA [Suspect]
     Dosage: RECEIVED 2 INJECTIONS
     Route: 050
     Dates: start: 20140508
  4. HUMIRA [Suspect]
     Dosage: RECEIVED 1 INJECTION
     Route: 050

REACTIONS (20)
  - Drug dispensing error [Unknown]
  - Incorrect dose administered [Unknown]
  - Incorrect dose administered [Unknown]
  - Incorrect dose administered [Unknown]
  - Malaise [Unknown]
  - Malaise [Unknown]
  - Somnolence [Unknown]
  - Somnolence [Unknown]
  - Disorientation [Unknown]
  - Incoherent [Unknown]
  - Somnolence [Unknown]
  - Headache [Unknown]
  - Pain [Unknown]
  - Urticaria [Unknown]
  - Malaise [Unknown]
  - Pain [Unknown]
  - Anxiety [Unknown]
  - Feeling abnormal [Unknown]
  - Depressed mood [Unknown]
  - Sense of oppression [Unknown]
